FAERS Safety Report 20622239 (Version 5)
Quarter: 2022Q2

REPORT INFORMATION
  Report Type: Report from Study
  Country: CH (occurrence: CH)
  Receive Date: 20220322
  Receipt Date: 20220408
  Transmission Date: 20220720
  Serious: Yes (Death, Other)
  Sender: FDA-Public Use
  Company Number: CH-AMICUS THERAPEUTICS, INC.-AMI_1752

PATIENT

DRUGS (1)
  1. GALAFOLD [Suspect]
     Active Substance: MIGALASTAT HYDROCHLORIDE
     Indication: Fabry^s disease
     Dosage: UNK
     Route: 048
     Dates: start: 2021

REACTIONS (4)
  - Embolism arterial [Fatal]
  - Renal infarct [Fatal]
  - Intestinal ischaemia [Fatal]
  - COVID-19 [Unknown]

NARRATIVE: CASE EVENT DATE: 20220309
